FAERS Safety Report 22959473 (Version 2)
Quarter: 2023Q4

REPORT INFORMATION
  Report Type: Spontaneous
  Country: US (occurrence: US)
  Receive Date: 20230920
  Receipt Date: 20231228
  Transmission Date: 20240109
  Serious: No
  Sender: FDA-Public Use
  Company Number: US-CIPLA LTD.-2023US03772

PATIENT

DRUGS (7)
  1. LENALIDOMIDE [Suspect]
     Active Substance: LENALIDOMIDE
     Indication: Product used for unknown indication
     Dosage: UNK
     Route: 065
     Dates: start: 20230530
  2. LENALIDOMIDE [Suspect]
     Active Substance: LENALIDOMIDE
     Dosage: 10 MG, UNK
     Route: 065
  3. LENALIDOMIDE [Suspect]
     Active Substance: LENALIDOMIDE
     Dosage: 6TH PILL ON NIGHT, 10 MG, UNK
     Route: 065
     Dates: start: 20230604
  4. LENALIDOMIDE [Suspect]
     Active Substance: LENALIDOMIDE
     Dosage: STARTED DRUG AGAIN AND TRIED DOING 3 NIGHTS AND SKIP A DAY AND TAKE AGAIN
     Route: 065
     Dates: start: 20230620
  5. LENALIDOMIDE [Suspect]
     Active Substance: LENALIDOMIDE
     Dosage: 3RD PILL, UNK
     Route: 065
     Dates: start: 20230622
  6. LENALIDOMIDE [Suspect]
     Active Substance: LENALIDOMIDE
     Dosage: 10TH PILL, UNK
     Route: 065
     Dates: start: 20230624
  7. LENALIDOMIDE [Suspect]
     Active Substance: LENALIDOMIDE
     Dosage: UNK (STARTED THE MEDICATION AGAIN)
     Route: 065
     Dates: start: 20230628

REACTIONS (8)
  - Feeling abnormal [Unknown]
  - Hypersomnia [Unknown]
  - Full blood count abnormal [Unknown]
  - Asthenia [Unknown]
  - Pruritus [Unknown]
  - Rash [Unknown]
  - Fatigue [Unknown]
  - Pyrexia [Unknown]

NARRATIVE: CASE EVENT DATE: 20230601
